FAERS Safety Report 4846476-7 (Version None)
Quarter: 2005Q4

REPORT INFORMATION
  Report Type: 
  Country: None (occurrence: None)
  Receive Date: 20051202
  Receipt Date: 20051128
  Transmission Date: 20060501
  Serious: Yes (Hospitalization)
  Sender: FDA-Public Use
  Company Number: S05-USA-05053-01

PATIENT
  Age: 24 Year
  Sex: Male

DRUGS (1)
  1. LEXAPRO [Suspect]
     Indication: ANGER
     Dosage: 5 MG QD PO
     Route: 048
     Dates: start: 20051031, end: 20051103

REACTIONS (2)
  - COLITIS ISCHAEMIC [None]
  - INFLUENZA LIKE ILLNESS [None]
